FAERS Safety Report 6665985-1 (Version None)
Quarter: 2010Q2

REPORT INFORMATION
  Report Type: 
  Country: None (occurrence: None)
  Receive Date: 20100402
  Receipt Date: 20100322
  Transmission Date: 20101027
  Serious: Yes (Other)
  Sender: FDA-Public Use
  Company Number: DE-BAXTER-2010BH001029

PATIENT
  Age: 47 Year
  Sex: Female
  Weight: 80 kg

DRUGS (6)
  1. GAMMAGARD LIQUID [Suspect]
     Indication: IMMUNODEFICIENCY
     Route: 042
     Dates: start: 20091211
  2. GAMMAGARD LIQUID [Suspect]
     Indication: NON-HODGKIN'S LYMPHOMA
     Route: 042
     Dates: start: 20091211
  3. GAMMAGARD LIQUID [Suspect]
     Indication: SECONDARY IMMUNODEFICIENCY
     Route: 042
     Dates: start: 20091211
  4. GAMMAGARD LIQUID [Suspect]
     Route: 042
  5. GAMMAGARD LIQUID [Suspect]
     Route: 042
  6. GAMMAGARD LIQUID [Suspect]
     Route: 042

REACTIONS (4)
  - ANAPHYLACTIC REACTION [None]
  - BACK PAIN [None]
  - CHILLS [None]
  - SKIN REACTION [None]
